FAERS Safety Report 7404266-5 (Version None)
Quarter: 2011Q1

REPORT INFORMATION
  Report Type: 
  Country: None (occurrence: None)
  Receive Date: 20110330
  Receipt Date: 20110315
  Transmission Date: 20110831
  Serious: Yes (Other)
  Sender: FDA-Public Use
  Company Number: 2011-0789

PATIENT
  Age: 4 Year
  Sex: Male
  Weight: 12.7 kg

DRUGS (3)
  1. MELANTONIN (MELANTONIN) [Concomitant]
  2. INCRELEX [Suspect]
     Indication: DWARFISM
     Dosage: 24 ML (12 ML,2 IN 1 D),PARENTERAL
     Route: 051
     Dates: start: 20110218, end: 20110314
  3. MULTIVITAMIN (MULTIVITAMIN /00831701/) [Concomitant]

REACTIONS (1)
  - VIITH NERVE PARALYSIS [None]
